FAERS Safety Report 12248286 (Version 1)
Quarter: 2016Q2

REPORT INFORMATION
  Report Type: Report from Study
  Country: JP (occurrence: JP)
  Receive Date: 20160408
  Receipt Date: 20160408
  Transmission Date: 20160815
  Serious: Yes (Other)
  Sender: FDA-Public Use
  Company Number: JP-ROCHE-1546794

PATIENT

DRUGS (6)
  1. RITUXIMAB [Suspect]
     Active Substance: RITUXIMAB
     Indication: B-CELL LYMPHOMA
     Dosage: ON DAY 1
     Route: 042
  2. CARBOPLATIN. [Suspect]
     Active Substance: CARBOPLATIN
     Indication: B-CELL LYMPHOMA
     Dosage: ON DAY 1 OVER 1 H
     Route: 065
  3. IFOSFAMIDE. [Suspect]
     Active Substance: IFOSFAMIDE
     Indication: B-CELL LYMPHOMA
     Dosage: OVER 2 H DAILY FOR 5 DAYS (FROM DAY 3 TO DAY 7)
     Route: 065
  4. METHOTREXATE [Suspect]
     Active Substance: METHOTREXATE
     Indication: B-CELL LYMPHOMA
     Dosage: OVER 30 MIN ON DAY 5 AND DAY 12
     Route: 065
  5. METHYLPREDNISOLONE. [Suspect]
     Active Substance: METHYLPREDNISOLONE
     Indication: B-CELL LYMPHOMA
     Dosage: 1000MG PER BODY OVER 30 MIN DAILY FOR 3 DAYS (FROM DAY 3 TO DAY 5)
     Route: 065
  6. ETOPOSIDE. [Suspect]
     Active Substance: ETOPOSIDE
     Indication: B-CELL LYMPHOMA
     Dosage: OVER 2 H DAILY FOR 3 D (FROM DAY 3 TO DAY 5)
     Route: 065

REACTIONS (11)
  - Anaemia [Unknown]
  - Blood creatinine increased [Unknown]
  - Hyperglycaemia [Unknown]
  - Hyperbilirubinaemia [Unknown]
  - Hepatic enzyme increased [Unknown]
  - Thrombocytopenia [Unknown]
  - Cardiac disorder [Unknown]
  - Nausea [Unknown]
  - Neutropenia [Unknown]
  - Febrile neutropenia [Unknown]
  - Constipation [Unknown]
